FAERS Safety Report 13584798 (Version 1)
Quarter: 2017Q2

REPORT INFORMATION
  Report Type: Spontaneous
  Country: GB (occurrence: GB)
  Receive Date: 20170526
  Receipt Date: 20170526
  Transmission Date: 20170830
  Serious: Yes (Hospitalization)
  Sender: FDA-Public Use
  Company Number: GB-TEVA-770273ACC

PATIENT
  Age: 83 Year
  Sex: Female

DRUGS (10)
  1. ADIZEM [Concomitant]
     Active Substance: DILTIAZEM HYDROCHLORIDE
  2. QUININE SULFATE. [Concomitant]
     Active Substance: QUININE SULFATE
  3. GAVISCON [Concomitant]
     Active Substance: ALUMINUM HYDROXIDE\MAGNESIUM CARBONATE
  4. RAMIPRIL. [Suspect]
     Active Substance: RAMIPRIL
     Indication: HYPERTENSION
     Dosage: 10 MILLIGRAM DAILY;
     Route: 048
  5. DIGOXIN. [Concomitant]
     Active Substance: DIGOXIN
  6. LACTULOSE. [Concomitant]
     Active Substance: LACTULOSE
  7. SENNA [Concomitant]
     Active Substance: SENNA LEAF\SENNOSIDES\SENNOSIDES A AND B
  8. WARFARIN [Concomitant]
     Active Substance: WARFARIN
  9. FUROSEMIDE. [Suspect]
     Active Substance: FUROSEMIDE
     Dosage: 20 MILLIGRAM DAILY;
  10. AMLODIPINE [Concomitant]
     Active Substance: AMLODIPINE BESYLATE

REACTIONS (6)
  - Hyponatraemia [Recovered/Resolved]
  - Fall [Unknown]
  - Adrenal mass [Unknown]
  - Lower respiratory tract infection [Unknown]
  - Thrombocytosis [Unknown]
  - Wheezing [Unknown]
